FAERS Safety Report 18891573 (Version 1)
Quarter: 2021Q1

REPORT INFORMATION
  Report Type: Report from Study
  Country: US (occurrence: US)
  Receive Date: 20210215
  Receipt Date: 20210215
  Transmission Date: 20210420
  Serious: No
  Sender: FDA-Public Use
  Company Number: US-BIOVITRUM-2021US1417

PATIENT
  Age: 11 Year
  Sex: Male

DRUGS (3)
  1. KINERET [Suspect]
     Active Substance: ANAKINRA
     Indication: STATUS EPILEPTICUS
  2. KINERET [Suspect]
     Active Substance: ANAKINRA
     Indication: LENNOX-GASTAUT SYNDROME
     Route: 058
     Dates: start: 20210113
  3. KINERET [Suspect]
     Active Substance: ANAKINRA
     Indication: STUBBORNNESS

REACTIONS (9)
  - Abdominal discomfort [Unknown]
  - Crying [Unknown]
  - Flatulence [Unknown]
  - Rash [Unknown]
  - Device occlusion [Unknown]
  - High-pitched crying [Unknown]
  - Food refusal [Unknown]
  - Off label use [Not Recovered/Not Resolved]
  - Frequent bowel movements [Unknown]

NARRATIVE: CASE EVENT DATE: 20210113
